FAERS Safety Report 18203170 (Version 3)
Quarter: 2021Q1

REPORT INFORMATION
  Report Type: Other
  Country: CA (occurrence: CA)
  Receive Date: 20200827
  Receipt Date: 20210111
  Transmission Date: 20210419
  Serious: Yes (Other)
  Sender: FDA-Public Use
  Company Number: CA-CELLTRION INC.-2020CA025460

PATIENT

DRUGS (11)
  1. KADCYLA [Suspect]
     Active Substance: ADO-TRASTUZUMAB EMTANSINE
     Indication: BREAST CANCER
     Dosage: 320 MG, 1 EVERY 3 WEEKS
     Route: 042
  2. KADCYLA [Suspect]
     Active Substance: ADO-TRASTUZUMAB EMTANSINE
     Indication: BREAST CANCER
     Dosage: 346.0 MILLIGRAM, 1 EVERY 3 WEEKS
     Route: 042
  3. TAXOL [Concomitant]
     Active Substance: PACLITAXEL
  4. TRASTUZUMAB (UNKNOWN) [Suspect]
     Active Substance: TRASTUZUMAB
     Indication: BREAST CANCER
     Route: 065
  5. STEMETIL [PROCHLORPERAZINE] [Concomitant]
     Active Substance: PROCHLORPERAZINE
     Route: 065
  6. PANTOLOC [PANTOPRAZOLE] [Concomitant]
     Active Substance: PANTOPRAZOLE SODIUM
  7. KADCYLA [Suspect]
     Active Substance: ADO-TRASTUZUMAB EMTANSINE
     Indication: BREAST CANCER
     Dosage: 388.0 MILLIGRAM, 1 EVERY 3 WEEKS
     Route: 042
  8. AZITHROMYCIN ANHYDROUS. [Concomitant]
     Active Substance: AZITHROMYCIN ANHYDROUS
  9. DECADRON [Concomitant]
     Active Substance: DEXAMETHASONE
     Indication: PREMEDICATION
     Dosage: 8.0 MILLIGRAM
     Route: 048
  10. GOSERELIN [Concomitant]
     Active Substance: GOSERELIN
  11. PANTOPRAZOLE [Concomitant]
     Active Substance: PANTOPRAZOLE

REACTIONS (5)
  - Oxygen saturation decreased [Unknown]
  - Blood pressure increased [Unknown]
  - Pneumonia [Unknown]
  - Blood pressure diastolic increased [Unknown]
  - Ovarian disorder [Unknown]
